FAERS Safety Report 18876061 (Version 1)
Quarter: 2021Q1

REPORT INFORMATION
  Report Type: Spontaneous
  Country: US (occurrence: US)
  Receive Date: 20210210
  Receipt Date: 20210210
  Transmission Date: 20210420
  Serious: Yes (Other)
  Sender: FDA-Public Use
  Company Number: US-BAUSCH-BL-2021-003786

PATIENT
  Age: 58 Year
  Sex: Female

DRUGS (15)
  1. CLINDAMYCIN. [Suspect]
     Active Substance: CLINDAMYCIN
     Indication: STAPHYLOCOCCAL INFECTION
     Route: 065
     Dates: start: 2016
  2. RITUXIMAB. [Suspect]
     Active Substance: RITUXIMAB
     Indication: ACUTE LYMPHOCYTIC LEUKAEMIA
     Route: 065
     Dates: start: 2016
  3. METHOTREXATE. [Suspect]
     Active Substance: METHOTREXATE
     Indication: ACUTE LYMPHOCYTIC LEUKAEMIA
     Route: 065
     Dates: start: 2016
  4. DOXORUBICIN [Suspect]
     Active Substance: DOXORUBICIN
     Indication: ACUTE LYMPHOCYTIC LEUKAEMIA
     Route: 065
     Dates: start: 2016
  5. DASATINIB. [Suspect]
     Active Substance: DASATINIB
     Indication: ACUTE LYMPHOCYTIC LEUKAEMIA
     Route: 065
     Dates: start: 2016
  6. CYTARABINE. [Suspect]
     Active Substance: CYTARABINE
     Indication: ACUTE LYMPHOCYTIC LEUKAEMIA
     Route: 065
     Dates: start: 2016
  7. VANCOMYCIN [Suspect]
     Active Substance: VANCOMYCIN
     Indication: STAPHYLOCOCCAL INFECTION
     Route: 065
     Dates: start: 2016
  8. VANCOMYCIN [Suspect]
     Active Substance: VANCOMYCIN
     Indication: ESCHERICHIA INFECTION
  9. PIPERACILLIN/TAZOBACTAM [Suspect]
     Active Substance: PIPERACILLIN SODIUM\TAZOBACTAM SODIUM
     Indication: STAPHYLOCOCCAL INFECTION
     Route: 065
     Dates: start: 2016
  10. PIPERACILLIN/TAZOBACTAM [Suspect]
     Active Substance: PIPERACILLIN SODIUM\TAZOBACTAM SODIUM
     Indication: ESCHERICHIA INFECTION
  11. VINCRISTINE [Suspect]
     Active Substance: VINCRISTINE
     Indication: ACUTE LYMPHOCYTIC LEUKAEMIA
     Route: 065
     Dates: start: 2016
  12. CYCLOPHOSPHAMIDE. [Suspect]
     Active Substance: CYCLOPHOSPHAMIDE
     Indication: ACUTE LYMPHOCYTIC LEUKAEMIA
     Route: 065
     Dates: start: 2016
  13. DASATINIB. [Suspect]
     Active Substance: DASATINIB
     Route: 065
     Dates: start: 20160908
  14. DEXAMETHASONE. [Suspect]
     Active Substance: DEXAMETHASONE
     Indication: ACUTE LYMPHOCYTIC LEUKAEMIA
     Route: 065
     Dates: start: 2016
  15. CLINDAMYCIN. [Suspect]
     Active Substance: CLINDAMYCIN
     Indication: ESCHERICHIA INFECTION

REACTIONS (5)
  - Therapy non-responder [Unknown]
  - Febrile neutropenia [Recovered/Resolved]
  - Staphylococcal infection [Unknown]
  - Escherichia infection [Unknown]
  - Fasciitis [Unknown]

NARRATIVE: CASE EVENT DATE: 2016
